FAERS Safety Report 6154256-8 (Version None)
Quarter: 2009Q2

REPORT INFORMATION
  Report Type: 
  Country: None (occurrence: None)
  Receive Date: 20090414
  Receipt Date: 20090407
  Transmission Date: 20091009
  Serious: Yes (Hospitalization)
  Sender: FDA-Public Use
  Company Number: ES-ABBOTT-09P-144-0567099-00

PATIENT
  Age: 57 Year
  Sex: Female

DRUGS (6)
  1. DEPAKENE [Suspect]
     Indication: CONVULSION
     Route: 048
     Dates: start: 20070615
  2. TEGRETOL [Interacting]
     Indication: CONVULSION
     Route: 048
     Dates: start: 20070615, end: 20070727
  3. ENALAPRIL MALEATE [Concomitant]
     Indication: DRUG USE FOR UNKNOWN INDICATION
     Route: 048
     Dates: start: 20070530
  4. IBUPROFEN [Concomitant]
     Indication: DRUG USE FOR UNKNOWN INDICATION
     Route: 048
  5. LORAZEPAM [Concomitant]
     Indication: DRUG USE FOR UNKNOWN INDICATION
     Route: 048
     Dates: start: 20070615
  6. ZOLPIDEM TARTRATE [Concomitant]
     Indication: DRUG USE FOR UNKNOWN INDICATION
     Route: 048

REACTIONS (3)
  - DRUG ERUPTION [None]
  - DRUG INTERACTION [None]
  - DRUG RASH WITH EOSINOPHILIA AND SYSTEMIC SYMPTOMS [None]
